FAERS Safety Report 8238487-9 (Version None)
Quarter: 2012Q1

REPORT INFORMATION
  Report Type: 
  Country: None (occurrence: None)
  Receive Date: 20120327
  Receipt Date: 20120322
  Transmission Date: 20120608
  Serious: Yes (Hospitalization, Other)
  Sender: FDA-Public Use
  Company Number: ES-PFIZER INC-2012074418

PATIENT
  Age: 36 Year
  Sex: Female

DRUGS (1)
  1. DOSTINEX [Suspect]
     Indication: LACTATION INHIBITION THERAPY
     Dosage: 1 MG, 1X/DAY
     Route: 048
     Dates: start: 20111010, end: 20111011

REACTIONS (2)
  - ANGIOPATHY [None]
  - VASCULITIS [None]
